FAERS Safety Report 5973659-5 (Version None)
Quarter: 2008Q4

REPORT INFORMATION
  Report Type: 
  Country: None (occurrence: None)
  Receive Date: 20081201
  Receipt Date: 20081119
  Transmission Date: 20090506
  Serious: Yes (Hospitalization)
  Sender: FDA-Public Use
  Company Number: US-ELI_LILLY_AND_COMPANY-US200811002759

PATIENT
  Age: 70 Year
  Sex: Female

DRUGS (9)
  1. CYMBALTA [Suspect]
     Indication: MAJOR DEPRESSION
     Dosage: 20 MG, UNK
     Dates: start: 20080813
  2. CYMBALTA [Suspect]
     Dosage: 30 MG, UNK
     Dates: start: 20080925
  3. CYMBALTA [Suspect]
     Dosage: 60 MG, UNK
     Dates: start: 20080901
  4. OLANZAPINE [Concomitant]
     Dosage: 20 MG, UNK
     Route: 048
     Dates: start: 20010101
  5. OLANZAPINE [Concomitant]
     Dosage: 10 MG, QOD
     Route: 048
     Dates: start: 20010101
  6. LAMICTAL [Concomitant]
     Dosage: 50 MG, 3/D
     Route: 048
     Dates: start: 20031101
  7. LAMICTAL [Concomitant]
     Dosage: 100 MG, EACH EVENING
     Route: 048
     Dates: start: 20031101
  8. LEVOTHYROXINE SODIUM [Concomitant]
  9. KLONOPIN [Concomitant]
     Indication: ANXIETY
     Dosage: 0.5 MG, 3/D
     Route: 048
     Dates: start: 20030101

REACTIONS (1)
  - PRURITUS [None]
